FAERS Safety Report 21214971 (Version 1)
Quarter: 2022Q3

REPORT INFORMATION
  Report Type: Spontaneous
  Country: US (occurrence: None)
  Receive Date: 20220816
  Receipt Date: 20220816
  Transmission Date: 20221026
  Serious: No
  Sender: FDA-Public Use
  Company Number: US-ROCHE-3125123

PATIENT
  Sex: Female

DRUGS (2)
  1. EVRYSDI [Suspect]
     Active Substance: RISDIPLAM
     Indication: Spinal muscular atrophy
     Dosage: 6.6ML IN ONE DAY
     Route: 048
     Dates: start: 202011
  2. EVRYSDI [Suspect]
     Active Substance: RISDIPLAM
     Indication: Muscular dystrophy

REACTIONS (1)
  - Arthralgia [Unknown]
